FAERS Safety Report 10811895 (Version 2)
Quarter: 2015Q1

REPORT INFORMATION
  Report Type: Spontaneous
  Country: ES (occurrence: ES)
  Receive Date: 20150217
  Receipt Date: 20150303
  Transmission Date: 20150721
  Serious: No
  Sender: FDA-Public Use
  Company Number: ES-AMGEN-ESPSP2015008825

PATIENT
  Age: 39 Year
  Sex: Male
  Weight: 100 kg

DRUGS (11)
  1. ENBREL [Suspect]
     Active Substance: ETANERCEPT
     Dosage: 50 MG, TWICE WEEKLY
     Route: 058
  2. SALAZOPYRIN [Concomitant]
     Active Substance: SULFASALAZINE
     Dosage: UNK, TWICE DAILY (1 IN THE MORNINGS AND 1 AT NIGHTS)
  3. ENBREL [Suspect]
     Active Substance: ETANERCEPT
     Indication: ARTHRALGIA
     Dosage: 50 MG, TWICE WEEKLY
     Route: 058
     Dates: start: 20141230
  4. LORAZEPAM. [Concomitant]
     Active Substance: LORAZEPAM
     Dosage: UNK, TWICE DAILY (1 IN THE MORNINGS AND 2 AT NIGHTS)
  5. OMACOR [Concomitant]
     Active Substance: OMEGA-3-ACID ETHYL ESTERS
     Indication: BLOOD TRIGLYCERIDES
     Dosage: UNK, TWICE DAILY (1 IN THE MORNINGS AND 1 IN AT NIGHTS)
  6. LOSARTAN [Concomitant]
     Active Substance: LOSARTAN
     Indication: HYPERTENSION
     Dosage: UNK, ONCE DAILY
  7. METOJECT [Concomitant]
     Active Substance: METHOTREXATE SODIUM
     Dosage: 12.5 UNK, ONCE WEEKLY
  8. ESOMEPRAZOLE [Concomitant]
     Active Substance: ESOMEPRAZOLE
     Indication: GASTRITIS PROPHYLAXIS
     Dosage: 40 MG, ONCE DAILY
  9. URBASON                            /00049601/ [Concomitant]
     Active Substance: METHYLPREDNISOLONE
     Dosage: 16 MG, 1X/DAY
  10. VOLTAREN [Concomitant]
     Active Substance: DICLOFENAC SODIUM
     Dosage: 100 MG, TWICE DAILY (1 IN THE MORNINGS AND 1 AT NIGHTS)
  11. MST CONTINUS [Concomitant]
     Active Substance: MORPHINE SULFATE
     Indication: PAIN
     Dosage: 130 MG, 2X/DAY (1 IN THE MORNING AND 1 AT NIGHT)

REACTIONS (6)
  - Gingival bleeding [Not Recovered/Not Resolved]
  - Gingival injury [Recovered/Resolved]
  - Epistaxis [Not Recovered/Not Resolved]
  - Arthralgia [Unknown]
  - Tooth disorder [Recovered/Resolved]
  - Muscle spasms [Recovering/Resolving]

NARRATIVE: CASE EVENT DATE: 201412
